FAERS Safety Report 10407736 (Version 1)
Quarter: 2014Q3

REPORT INFORMATION
  Report Type: Spontaneous
  Country: US (occurrence: US)
  Receive Date: 20140825
  Receipt Date: 20140825
  Transmission Date: 20150326
  Serious: No
  Sender: FDA-Public Use
  Company Number: US-B.I. PHARMACEUTICALS,INC./RIDGEFIELD-2014-BI-38184PF

PATIENT
  Sex: Female

DRUGS (2)
  1. INLYTA [Concomitant]
     Active Substance: AXITINIB
     Indication: RENAL CANCER
     Dosage: 10 MG
     Route: 065
  2. SPIRIVA [Suspect]
     Active Substance: TIOTROPIUM BROMIDE MONOHYDRATE
     Indication: PRODUCT USED FOR UNKNOWN INDICATION
     Route: 065

REACTIONS (5)
  - Psoriasis [Unknown]
  - Pain [Unknown]
  - Erythema [Unknown]
  - Nausea [Unknown]
  - Diarrhoea [Unknown]
